FAERS Safety Report 6575078-X (Version None)
Quarter: 2010Q1

REPORT INFORMATION
  Report Type: 
  Country: None (occurrence: None)
  Receive Date: 20100209
  Receipt Date: 20100201
  Transmission Date: 20100710
  Serious: Yes (Hospitalization, Other)
  Sender: FDA-Public Use
  Company Number: US-AMGEN-QUU389941

PATIENT
  Sex: Female

DRUGS (1)
  1. ENBREL [Suspect]
     Indication: RHEUMATOID ARTHRITIS
     Route: 058
     Dates: start: 20090906, end: 20091125

REACTIONS (9)
  - ASTHENIA [None]
  - BLOOD PRESSURE INCREASED [None]
  - DIALYSIS [None]
  - ENDOTRACHEAL INTUBATION [None]
  - HAEMOLYTIC URAEMIC SYNDROME [None]
  - INCREASED INSULIN REQUIREMENT [None]
  - PULMONARY OEDEMA [None]
  - THROMBOTIC THROMBOCYTOPENIC PURPURA [None]
  - WEIGHT DECREASED [None]
